FAERS Safety Report 15968434 (Version 1)
Quarter: 2019Q1

REPORT INFORMATION
  Report Type: Spontaneous
  Country: US (occurrence: US)
  Receive Date: 20190215
  Receipt Date: 20190215
  Transmission Date: 20190418
  Serious: Yes (Hospitalization, Other)
  Sender: FDA-Public Use
  Company Number: US-TELIGENT, INC-IGIL20190082

PATIENT
  Age: 75 Year
  Sex: Male

DRUGS (9)
  1. ACETAMINOPHEN AND CODEINE [Concomitant]
     Active Substance: ACETAMINOPHEN\CODEINE PHOSPHATE
     Indication: PROCEDURAL PAIN
     Dosage: 30 MG/300 MG
     Route: 048
  2. CLONIDINE. [Suspect]
     Active Substance: CLONIDINE
     Indication: PROCEDURAL PAIN
     Dosage: OVER ENTIRE BACK AND LEFT LOWER EXTREMITY
     Route: 061
  3. IMIPRAMINE [Suspect]
     Active Substance: IMIPRAMINE
     Indication: PROCEDURAL PAIN
     Dosage: OVER ENTIRE BACK AND LEFT LOWER EXTREMITY
     Route: 061
  4. PRAVASTATIN. [Concomitant]
     Active Substance: PRAVASTATIN
     Indication: PRODUCT USED FOR UNKNOWN INDICATION
     Dosage: 40 MG
     Route: 065
  5. LIDOCAINE HYDROCHLORIDE TOPICAL SOLUTION, 4% [Suspect]
     Active Substance: LIDOCAINE HYDROCHLORIDE
     Indication: PROCEDURAL PAIN
     Dosage: OVER ENTIRE BACK AND LEFT LOWER EXTREMITY
     Route: 061
  6. KETAMINE [Suspect]
     Active Substance: KETAMINE
     Indication: PROCEDURAL PAIN
     Dosage: OVER ENTIRE BACK AND LEFT LOWER EXTREMITY
     Route: 061
  7. MEFENAMIC ACID. [Suspect]
     Active Substance: MEFENAMIC ACID
     Indication: PROCEDURAL PAIN
     Dosage: OVER ENTIRE BACK AND LEFT LOWER EXTREMITY
     Route: 061
  8. TELMISARTAN. [Concomitant]
     Active Substance: TELMISARTAN
     Indication: PRODUCT USED FOR UNKNOWN INDICATION
     Dosage: 40 MG
     Route: 065
  9. GABAPENTIN. [Suspect]
     Active Substance: GABAPENTIN
     Indication: PROCEDURAL PAIN
     Dosage: OVER ENTIRE BACK AND LEFT LOWER EXTREMITY
     Route: 061

REACTIONS (18)
  - Delirium [Recovered/Resolved]
  - Judgement impaired [Recovered/Resolved]
  - Hypertension [Recovered/Resolved]
  - Hostility [Recovered/Resolved]
  - Encephalopathy [Recovered/Resolved]
  - Sleep deficit [Recovered/Resolved]
  - Flight of ideas [Recovered/Resolved]
  - Aggression [Recovered/Resolved]
  - Anger [Recovered/Resolved]
  - Tangentiality [Recovered/Resolved]
  - Mental status changes [Recovered/Resolved]
  - Confusional state [Recovered/Resolved]
  - Abnormal behaviour [Recovered/Resolved]
  - Dissociative disorder [Recovered/Resolved]
  - Apathy [Recovered/Resolved]
  - Agitation [Recovered/Resolved]
  - Disorientation [Recovered/Resolved]
  - Paranoia [Recovered/Resolved]
